FAERS Safety Report 8308547-2 (Version None)
Quarter: 2012Q2

REPORT INFORMATION
  Report Type: 
  Country: None (occurrence: None)
  Receive Date: 20120424
  Receipt Date: 20120416
  Transmission Date: 20120825
  Serious: Yes (Hospitalization, Other)
  Sender: FDA-Public Use
  Company Number: US-JNJFOC-20110908462

PATIENT

DRUGS (2)
  1. LEVAQUIN [Suspect]
     Indication: INFECTION
     Route: 048
     Dates: start: 20090831, end: 20090918
  2. BUPROPION HCL [Concomitant]
     Indication: DEPRESSION
     Route: 065

REACTIONS (5)
  - TENDON RUPTURE [None]
  - JOINT SWELLING [None]
  - MUSCULOSKELETAL PAIN [None]
  - TENDON DISORDER [None]
  - TENDONITIS [None]
